FAERS Safety Report 10917778 (Version 1)
Quarter: 2015Q1

REPORT INFORMATION
  Report Type: Spontaneous
  Country: US (occurrence: US)
  Receive Date: 20150316
  Receipt Date: 20150316
  Transmission Date: 20150721
  Serious: No
  Sender: FDA-Public Use
  Company Number: US-GLAXOSMITHKLINE-US2015024421

PATIENT
  Sex: Female

DRUGS (12)
  1. ASPIRIN. [Concomitant]
     Active Substance: ASPIRIN
  2. CLONIDINE. [Concomitant]
     Active Substance: CLONIDINE
  3. LEVOTHROID [Concomitant]
     Active Substance: LEVOTHYROXINE SODIUM
  4. LOSARTAN [Concomitant]
     Active Substance: LOSARTAN
  5. FOLIC ACID. [Concomitant]
     Active Substance: FOLIC ACID
  6. ADVAIR DISKUS [Suspect]
     Active Substance: FLUTICASONE PROPIONATE\SALMETEROL XINAFOATE
     Indication: CHRONIC OBSTRUCTIVE PULMONARY DISEASE
     Dosage: 1 DF, BID
     Route: 055
  7. ZETIA [Concomitant]
     Active Substance: EZETIMIBE
  8. GLUCOSAMINE [Concomitant]
     Active Substance: GLUCOSAMINE
  9. ALBUTEROL AND IPRATROPIUM NEBULE [Concomitant]
  10. FUROSEMIDE. [Concomitant]
     Active Substance: FUROSEMIDE
  11. ATORVASTATIN [Concomitant]
     Active Substance: ATORVASTATIN
  12. CALTRATE [Concomitant]
     Active Substance: CALCIUM CARBONATE

REACTIONS (2)
  - Upper-airway cough syndrome [Not Recovered/Not Resolved]
  - Increased upper airway secretion [Not Recovered/Not Resolved]
